FAERS Safety Report 5179296-7 (Version None)
Quarter: 2006Q4

REPORT INFORMATION
  Report Type: 
  Country: None (occurrence: None)
  Receive Date: 20061219
  Receipt Date: 20040715
  Transmission Date: 20070319
  Serious: Yes (Hospitalization, Disabling)
  Sender: FDA-Public Use
  Company Number: US-GLAXOSMITHKLINE-A0518764A

PATIENT
  Age: 45 Year
  Sex: Female
  Weight: 85 kg

DRUGS (10)
  1. DEXEDRINE [Suspect]
     Indication: DEPRESSION
     Dosage: 5MG SEE DOSAGE TEXT
     Route: 048
     Dates: start: 20010801
  2. ADDERALL 10 [Suspect]
     Indication: SLEEP DISORDER
  3. MERIDIA [Suspect]
     Indication: DRUG USE FOR UNKNOWN INDICATION
  4. PAXIL CR [Concomitant]
     Dosage: 25MG PER DAY
  5. CIPROFLOXACIN [Concomitant]
  6. LEXAPRO [Concomitant]
  7. VICODIN [Concomitant]
  8. EFFEXOR [Concomitant]
     Dates: start: 20010601
  9. DIAZEPAM [Concomitant]
     Indication: DRUG USE FOR UNKNOWN INDICATION
  10. LODINE [Concomitant]

REACTIONS (15)
  - CARDIAC FAILURE CONGESTIVE [None]
  - CARDIOMEGALY [None]
  - CHEST DISCOMFORT [None]
  - CHEST PAIN [None]
  - COUGH [None]
  - DILATATION VENTRICULAR [None]
  - DYSPNOEA EXERTIONAL [None]
  - FATIGUE [None]
  - INSOMNIA [None]
  - PALPITATIONS [None]
  - PERICARDIAL EFFUSION [None]
  - PULMONARY HYPERTENSION [None]
  - PYREXIA [None]
  - RESPIRATORY DISTRESS [None]
  - TRICUSPID VALVE INCOMPETENCE [None]
